FAERS Safety Report 8245460-3 (Version None)
Quarter: 2012Q1

REPORT INFORMATION
  Report Type: 
  Country: None (occurrence: None)
  Receive Date: 20120329
  Receipt Date: 20120319
  Transmission Date: 20120608
  Serious: Yes (Disabling)
  Sender: FDA-Public Use
  Company Number: US-MERCK-0202USA02118

PATIENT
  Age: 59 Year
  Sex: Female

DRUGS (5)
  1. FOSAMAX [Suspect]
     Route: 048
     Dates: start: 20031001
  2. PRINZIDE [Concomitant]
     Route: 065
  3. FOSAMAX [Suspect]
     Route: 048
     Dates: end: 20080101
  4. FOSAMAX [Suspect]
     Indication: OSTEOPOROSIS
     Route: 048
     Dates: start: 19960101, end: 20031001
  5. SYNTHROID [Concomitant]
     Route: 065

REACTIONS (12)
  - LOW TURNOVER OSTEOPATHY [None]
  - DECREASED APPETITE [None]
  - ARTHRALGIA [None]
  - FEMUR FRACTURE [None]
  - BONE DENSITY DECREASED [None]
  - HIP FRACTURE [None]
  - STRESS FRACTURE [None]
  - ABDOMINAL PAIN UPPER [None]
  - DRUG INEFFECTIVE [None]
  - MYALGIA [None]
  - NAUSEA [None]
  - OSTEOPOROSIS [None]
